FAERS Safety Report 21533544 (Version 2)
Quarter: 2022Q4

REPORT INFORMATION
  Report Type: Spontaneous
  Country: CZ (occurrence: CZ)
  Receive Date: 20221101
  Receipt Date: 20221128
  Transmission Date: 20230113
  Serious: Yes (Other)
  Sender: FDA-Public Use
  Company Number: CZ-002147023-NVSC2022CZ201850

PATIENT
  Age: 71 Year
  Sex: Female

DRUGS (2)
  1. SUNITINIB [Suspect]
     Active Substance: SUNITINIB
     Indication: Renal cell carcinoma
     Dosage: UNK, CYCLIC (FIRST CYCLE)
     Route: 065
     Dates: start: 202003
  2. SUNITINIB [Suspect]
     Active Substance: SUNITINIB
     Dosage: 37.5 MG, QD (DECREASED)
     Route: 065
     Dates: end: 202009

REACTIONS (4)
  - Thrombocytopenia [Unknown]
  - Renal cell carcinoma [Unknown]
  - Malignant neoplasm progression [Unknown]
  - Headache [Unknown]

NARRATIVE: CASE EVENT DATE: 20200101
